FAERS Safety Report 6960673 (Version 2)
Quarter: 2016Q4

REPORT INFORMATION
  Report Type: Report from Study
  Country: JP (occurrence: JP)
  Receive Date: 20090403
  Receipt Date: 20161221
  Transmission Date: 20170207
  Serious: Yes (Death, Hospitalization)
  Sender: FDA-Public Use
  Company Number: PHHY2008JP05266

PATIENT
  Age: 17 Year
  Sex: Female
  Weight: 33 kg

DRUGS (16)
  1. CERTICAN [Suspect]
     Active Substance: EVEROLIMUS
     Dosage: 1.5 MG, QD
     Route: 048
     Dates: start: 20071023, end: 20071031
  2. NEORAL [Suspect]
     Active Substance: CYCLOSPORINE
     Indication: IMMUNE THROMBOCYTOPENIC PURPURA
     Dosage: 100 MG/DAY
     Route: 048
     Dates: start: 200209, end: 200210
  3. FOSCAVIR [Concomitant]
     Active Substance: FOSCARNET SODIUM
     Indication: PRODUCT USED FOR UNKNOWN INDICATION
     Dosage: 3000 MG, QD
     Route: 042
     Dates: start: 20071023
  4. CERTICAN [Suspect]
     Active Substance: EVEROLIMUS
     Dosage: 0.75 MG/ DAY
     Route: 048
     Dates: start: 20071116, end: 20071120
  5. CERTICAN [Suspect]
     Active Substance: EVEROLIMUS
     Indication: CYTOMEGALOVIRUS INFECTION
     Dosage: 0.75 MG, BID
     Route: 048
     Dates: start: 20071023, end: 20071031
  6. PREDNISOLONE. [Concomitant]
     Active Substance: PREDNISOLONE
     Dosage: 7 MG
     Route: 042
     Dates: end: 20071120
  7. MESALAZINE [Concomitant]
     Active Substance: MESALAMINE
     Indication: IMMUNE THROMBOCYTOPENIC PURPURA
     Dosage: UNK
     Route: 065
  8. CERTICAN [Suspect]
     Active Substance: EVEROLIMUS
     Indication: IMMUNE THROMBOCYTOPENIC PURPURA
     Dosage: 1 MG/DAY
     Route: 048
     Dates: start: 20071101, end: 20071116
  9. CERTICAN [Suspect]
     Active Substance: EVEROLIMUS
     Dosage: 0.7 MG, QD
     Route: 048
     Dates: start: 20071116, end: 20071120
  10. PREDNISOLONE. [Concomitant]
     Active Substance: PREDNISOLONE
     Indication: PRODUCT USED FOR UNKNOWN INDICATION
     Dosage: 6 MG
     Route: 048
     Dates: start: 20071023
  11. PREDNISOLONE. [Concomitant]
     Active Substance: PREDNISOLONE
     Dosage: 6 MG
     Route: 042
  12. CERTICAN [Suspect]
     Active Substance: EVEROLIMUS
     Dosage: 1 MG, QD
     Route: 048
     Dates: start: 20071101, end: 20071116
  13. NEORAL [Suspect]
     Active Substance: CYCLOSPORINE
     Dosage: 100 MG, QD
     Route: 048
     Dates: start: 200209, end: 200210
  14. IMURAN [Concomitant]
     Active Substance: AZATHIOPRINE
     Indication: PRODUCT USED FOR UNKNOWN INDICATION
     Dosage: 25 MG, QD
     Route: 048
     Dates: start: 20071023, end: 20071109
  15. PREDNISOLONE. [Concomitant]
     Active Substance: PREDNISOLONE
     Dosage: 10 MG
     Route: 042
  16. AZATHIOPRINE. [Concomitant]
     Active Substance: AZATHIOPRINE
     Indication: IMMUNE THROMBOCYTOPENIC PURPURA
     Dosage: UNK
     Route: 065
     Dates: start: 200510

REACTIONS (34)
  - Seizure [Fatal]
  - Blood creatinine decreased [Unknown]
  - Neutrophil count increased [Unknown]
  - Monocyte count decreased [Unknown]
  - Melaena [Fatal]
  - Disease recurrence [Fatal]
  - Blood bilirubin increased [Unknown]
  - Blood cholesterol decreased [Unknown]
  - Blood creatine phosphokinase decreased [Unknown]
  - Blood triglycerides increased [Unknown]
  - Respiratory failure [Fatal]
  - Brain stem syndrome [Fatal]
  - Cytomegalovirus enterocolitis [Fatal]
  - Haematocrit decreased [Unknown]
  - Alanine aminotransferase increased [Unknown]
  - Haemoglobin decreased [Unknown]
  - Lymphocyte count decreased [Unknown]
  - CSF cell count increased [Fatal]
  - Tremor [Fatal]
  - Hypophagia [Fatal]
  - Headache [Recovered/Resolved]
  - Blood urea decreased [Unknown]
  - Blood albumin decreased [Unknown]
  - Encephalitis cytomegalovirus [Fatal]
  - Depressed level of consciousness [Fatal]
  - Pyrexia [Fatal]
  - White blood cell count increased [Fatal]
  - Restlessness [Fatal]
  - Blood lactate dehydrogenase increased [Unknown]
  - Aspartate aminotransferase increased [Unknown]
  - Gamma-glutamyltransferase increased [Unknown]
  - Blood alkaline phosphatase increased [Unknown]
  - Red blood cell count decreased [Unknown]
  - Platelet count decreased [Unknown]

NARRATIVE: CASE EVENT DATE: 200209
